FAERS Safety Report 17045195 (Version 1)
Quarter: 2019Q4

REPORT INFORMATION
  Report Type: Report from Study
  Country: CA (occurrence: CA)
  Receive Date: 20191118
  Receipt Date: 20191118
  Transmission Date: 20200122
  Serious: Yes (Hospitalization, Disabling)
  Sender: FDA-Public Use
  Company Number: CA-HLSUS-2019-CA-000879

PATIENT
  Age: 57 Year
  Sex: Male

DRUGS (4)
  1. INVEGA SUSTENNA [Concomitant]
     Active Substance: PALIPERIDONE PALMITATE
     Dates: end: 2018
  2. EPIVAL [Concomitant]
     Active Substance: DIVALPROEX SODIUM
     Dates: end: 2018
  3. CLOZARIL [Suspect]
     Active Substance: CLOZAPINE
     Route: 048
     Dates: start: 20180423, end: 20190604
  4. LOVAX [Concomitant]

REACTIONS (6)
  - Pallor [Recovered/Resolved with Sequelae]
  - Somnolence [Recovered/Resolved with Sequelae]
  - Drug intolerance [Unknown]
  - Decreased appetite [Unknown]
  - Weight decreased [Recovered/Resolved with Sequelae]
  - Confusional state [Unknown]

NARRATIVE: CASE EVENT DATE: 20190228
